FAERS Safety Report 4407603-9 (Version None)
Quarter: 2004Q3

REPORT INFORMATION
  Report Type: 
  Country: None (occurrence: None)
  Receive Date: 20040721
  Receipt Date: 20040701
  Transmission Date: 20050211
  Serious: Yes (Death, Life-Threatening, Hospitalization)
  Sender: FDA-Public Use
  Company Number: DE_040713883

PATIENT
  Age: 47 Year
  Sex: Female
  Weight: 58 kg

DRUGS (2)
  1. GEMZAR [Suspect]
     Indication: BREAST CANCER METASTATIC
     Dosage: 2000 MG
     Dates: start: 20040102
  2. TAXOL [Concomitant]

REACTIONS (6)
  - APALLIC SYNDROME [None]
  - BLOOD LACTATE DEHYDROGENASE DECREASED [None]
  - CIRCULATORY COLLAPSE [None]
  - HYPOXIC ENCEPHALOPATHY [None]
  - PNEUMOTHORAX [None]
  - SHOCK [None]
